FAERS Safety Report 18267527 (Version 1)
Quarter: 2020Q3

REPORT INFORMATION
  Report Type: Spontaneous
  Country: CA (occurrence: CA)
  Receive Date: 20200915
  Receipt Date: 20200915
  Transmission Date: 20201103
  Serious: Yes (Hospitalization)
  Sender: FDA-Public Use
  Company Number: CA-JNJFOC-20200907188

PATIENT
  Age: 84 Year
  Sex: Male

DRUGS (6)
  1. ALENDRONATE/COLECALCIFEROL ROWEX [Concomitant]
     Active Substance: ALENDRONATE SODIUM\CHOLECALCIFEROL
     Route: 065
  2. PIPERACILLIN AND TAZOBACTAM [Concomitant]
     Active Substance: PIPERACILLIN SODIUM\TAZOBACTAM SODIUM
     Route: 042
  3. SIMPONI [Suspect]
     Active Substance: GOLIMUMAB
  4. GOLIMUMAB [Concomitant]
     Active Substance: GOLIMUMAB
  5. SIMPONI [Suspect]
     Active Substance: GOLIMUMAB
     Indication: RHEUMATOID ARTHRITIS
     Route: 058
  6. SIMVASTATIN. [Concomitant]
     Active Substance: SIMVASTATIN

REACTIONS (5)
  - Chest X-ray [Unknown]
  - Pyrexia [Unknown]
  - Influenza A virus test positive [Unknown]
  - Asthenia [Unknown]
  - Pancytopenia [Unknown]
